FAERS Safety Report 18162871 (Version 1)
Quarter: 2020Q3

REPORT INFORMATION
  Report Type: Other
  Country: US (occurrence: US)
  Receive Date: 20200818
  Receipt Date: 20200818
  Transmission Date: 20201103
  Serious: Yes (Other)
  Sender: FDA-Public Use
  Company Number: US-ROCHE-2660918

PATIENT
  Age: 42 Year
  Sex: Female
  Weight: 74.91 kg

DRUGS (11)
  1. OCREVUS [Suspect]
     Active Substance: OCRELIZUMAB
     Indication: SECONDARY PROGRESSIVE MULTIPLE SCLEROSIS
     Route: 065
     Dates: start: 20200812
  2. VITAMIN D2 [Concomitant]
     Active Substance: ERGOCALCIFEROL
     Dosage: TAKE 1 CAPSULE BY MOUTH ONCE A WEEK
     Route: 048
     Dates: start: 20190711
  3. OCREVUS [Suspect]
     Active Substance: OCRELIZUMAB
     Route: 042
  4. ABILIFY [Concomitant]
     Active Substance: ARIPIPRAZOLE
     Dosage: TAKE 1 TABLET DAILY FOR DEPRESSION TREATMENT ADJUNCT
     Route: 048
     Dates: start: 20200716
  5. PROZAC [Concomitant]
     Active Substance: FLUOXETINE HYDROCHLORIDE
     Dosage: TAKE 2 CAPSULES BY MOUTH DAILY FOR ANXIETY AND DEPRESSION
     Route: 048
     Dates: start: 20200716
  6. OCREVUS [Suspect]
     Active Substance: OCRELIZUMAB
     Indication: MULTIPLE SCLEROSIS
     Dosage: ONGOING YES
     Route: 042
     Dates: start: 20200729
  7. LORAZEPAM. [Concomitant]
     Active Substance: LORAZEPAM
     Dosage: TAKE 1 TABLET BY MOUTH 2 TIMES A DAY AS NEEDED FOR ANXIETY
     Route: 048
     Dates: start: 20200716
  8. IRON [Concomitant]
     Active Substance: IRON
  9. PROTONIX [Concomitant]
     Active Substance: PANTOPRAZOLE SODIUM
     Dosage: TAKE 1 TABLET DAILY
     Route: 048
     Dates: start: 20200123
  10. NEURONTIN [Concomitant]
     Active Substance: GABAPENTIN
     Dosage: TAKE 1 CAPSULE 2 TIMES DAILY FOR NEUROPATHIC PAIN
     Route: 048
     Dates: start: 20200716
  11. TRAZODONE [Concomitant]
     Active Substance: TRAZODONE HYDROCHLORIDE
     Dosage: TAKE 2 TABLETS BY MOUTH AT NIGHT FOR INSOMNIA ASSOCIATED WITH DEPRESSION
     Route: 048
     Dates: start: 20200716

REACTIONS (2)
  - Urinary incontinence [Not Recovered/Not Resolved]
  - Urinary tract infection [Not Recovered/Not Resolved]

NARRATIVE: CASE EVENT DATE: 20200810
